FAERS Safety Report 6489316-5 (Version None)
Quarter: 2009Q4

REPORT INFORMATION
  Report Type: 
  Country: None (occurrence: None)
  Receive Date: 20091210
  Receipt Date: 20091006
  Transmission Date: 20100525
  Serious: No
  Sender: FDA-Public Use
  Company Number: US-AMGEN-KDL367944

PATIENT
  Sex: Female
  Weight: 55.4 kg

DRUGS (7)
  1. ENBREL [Suspect]
     Indication: RHEUMATOID ARTHRITIS
     Route: 058
     Dates: start: 20050615
  2. ENBREL [Suspect]
     Indication: SJOGREN'S SYNDROME
  3. ENBREL [Suspect]
     Indication: DRUG USE FOR UNKNOWN INDICATION
  4. PLAQUENIL [Concomitant]
     Route: 048
     Dates: start: 20050701
  5. PREDNISONE [Concomitant]
  6. TYLENOL (CAPLET) [Concomitant]
  7. PREMPRO [Concomitant]

REACTIONS (10)
  - BACK PAIN [None]
  - BLOOD PRESSURE SYSTOLIC INCREASED [None]
  - CONTUSION [None]
  - INJECTION SITE ERYTHEMA [None]
  - INJECTION SITE REACTION [None]
  - MUSCULOSKELETAL STIFFNESS [None]
  - NECK PAIN [None]
  - RHEUMATOID ARTHRITIS [None]
  - SKIN ATROPHY [None]
  - VARICOSE VEIN [None]
